FAERS Safety Report 19377155 (Version 1)
Quarter: 2021Q2

REPORT INFORMATION
  Report Type: Spontaneous
  Country: CN (occurrence: CN)
  Receive Date: 20210605
  Receipt Date: 20210605
  Transmission Date: 20210717
  Serious: Yes (Hospitalization)
  Sender: FDA-Public Use
  Company Number: CN-DRREDDYS-GPV/CHN/21/0136233

PATIENT
  Age: 19 Year
  Sex: Male
  Weight: 92 kg

DRUGS (5)
  1. OLANZAPINE. [Suspect]
     Active Substance: OLANZAPINE
     Dosage: 10MG,BID
     Route: 048
     Dates: start: 20210103, end: 20210419
  2. SERTRALINE HYDROCHLORIDE TABLETS [Concomitant]
     Active Substance: SERTRALINE HYDROCHLORIDE
     Indication: OBSESSIVE-COMPULSIVE DISORDER
     Dosage: 50 MG/DAY
     Route: 048
     Dates: start: 20210104
  3. SERTRALINE HYDROCHLORIDE TABLETS [Concomitant]
     Active Substance: SERTRALINE HYDROCHLORIDE
     Dosage: 200 MG/DAY
     Route: 048
     Dates: start: 20210318
  4. OLANZAPINE. [Suspect]
     Active Substance: OLANZAPINE
     Indication: SCHIZOPHRENIA
     Dosage: 5.000000MG,BID
     Route: 048
     Dates: start: 20201107, end: 20210102
  5. SERTRALINE HYDROCHLORIDE TABLETS [Concomitant]
     Active Substance: SERTRALINE HYDROCHLORIDE
     Route: 048
     Dates: start: 20210513, end: 20210514

REACTIONS (1)
  - Obsessive-compulsive disorder [Recovering/Resolving]

NARRATIVE: CASE EVENT DATE: 20210415
